FAERS Safety Report 14563892 (Version 1)
Quarter: 2018Q1

REPORT INFORMATION
  Report Type: Spontaneous
  Country: US (occurrence: US)
  Receive Date: 20180222
  Receipt Date: 20180222
  Transmission Date: 20180509
  Serious: No
  Sender: FDA-Public Use
  Company Number: None

PATIENT
  Age: 69 Year
  Sex: Female
  Weight: 74.39 kg

DRUGS (1)
  1. LISINOPRIL 10MG TAB [Suspect]
     Active Substance: LISINOPRIL
     Indication: BLOOD PRESSURE INCREASED
     Dosage: 90 PILLS 1-ONCE MOUTH
     Route: 048
     Dates: start: 20170929

REACTIONS (8)
  - Diplopia [None]
  - Pain in extremity [None]
  - Tremor [None]
  - Dizziness [None]
  - Headache [None]
  - Back pain [None]
  - Hypotension [None]
  - Vertigo [None]

NARRATIVE: CASE EVENT DATE: 20170929
